FAERS Safety Report 18554861 (Version 1)
Quarter: 2020Q4

REPORT INFORMATION
  Report Type: Report from Study
  Country: NL (occurrence: NL)
  Receive Date: 20201127
  Receipt Date: 20201127
  Transmission Date: 20210114
  Serious: Yes (Hospitalization)
  Sender: FDA-Public Use
  Company Number: NL-JNJFOC-20201109894

PATIENT
  Sex: Male

DRUGS (1)
  1. VELETRI [Suspect]
     Active Substance: EPOPROSTENOL
     Indication: PORTOPULMONARY HYPERTENSION
     Route: 042

REACTIONS (3)
  - Fluid retention [Unknown]
  - Adverse drug reaction [Unknown]
  - Product administration error [Unknown]
